FAERS Safety Report 6525396-6 (Version None)
Quarter: 2010Q1

REPORT INFORMATION
  Report Type: 
  Country: None (occurrence: None)
  Receive Date: 20100104
  Receipt Date: 20091222
  Transmission Date: 20100710
  Serious: Yes (Other)
  Sender: FDA-Public Use
  Company Number: US-ELI_LILLY_AND_COMPANY-US200912005189

PATIENT
  Age: 27 Year
  Sex: Female
  Weight: 116.1 kg

DRUGS (4)
  1. ZYPREXA [Suspect]
     Indication: SCHIZOAFFECTIVE DISORDER
     Dosage: 10 MG, 2/D
     Dates: start: 19960101
  2. PROZAC [Suspect]
     Indication: SCHIZOAFFECTIVE DISORDER
     Dosage: 20 MG, UNK
     Dates: start: 19960101
  3. GEODON [Concomitant]
     Dosage: 160 MG, EACH EVENING
  4. TOPAMAX [Concomitant]
     Dosage: 200 MG, DAILY (1/D)

REACTIONS (10)
  - ABNORMAL BEHAVIOUR [None]
  - AGITATION [None]
  - ANGER [None]
  - BLOOD CHOLESTEROL INCREASED [None]
  - DRUG INEFFECTIVE [None]
  - HYPERTENSION [None]
  - INCREASED APPETITE [None]
  - OPPOSITIONAL DEFIANT DISORDER [None]
  - POTENTIATING DRUG INTERACTION [None]
  - WEIGHT INCREASED [None]
